FAERS Safety Report 24933561 (Version 1)
Quarter: 2025Q1

REPORT INFORMATION
  Report Type: Spontaneous
  Country: AU (occurrence: AU)
  Receive Date: 20250206
  Receipt Date: 20250206
  Transmission Date: 20250408
  Serious: Yes (Hospitalization)
  Sender: EXELIXIS
  Company Number: AU-Korea IPSEN-2023-27442

PATIENT
  Sex: Male
  Weight: 58 kg

DRUGS (9)
  1. CABOMETYX [Suspect]
     Active Substance: CABOZANTINIB S-MALATE
     Indication: Follicular thyroid cancer
     Route: 048
     Dates: start: 20230913, end: 20231201
  2. CABOMETYX [Suspect]
     Active Substance: CABOZANTINIB S-MALATE
     Dosage: 40 MG, QD
     Route: 048
  3. LEVOTHYROXINE [Concomitant]
     Active Substance: LEVOTHYROXINE
     Indication: Thyroidectomy
     Dosage: 175 MG, QD
     Route: 048
     Dates: start: 2015
  4. CISPLATIN [Concomitant]
     Active Substance: CISPLATIN
     Indication: Type 2 diabetes mellitus
     Route: 048
  5. MISOPROSTOL [Concomitant]
     Active Substance: MISOPROSTOL
     Indication: Cardiac failure
     Route: 048
     Dates: start: 2019
  6. FUROSEMIDE [Concomitant]
     Active Substance: FUROSEMIDE
     Indication: Cardiac failure
     Route: 048
     Dates: start: 2019
  7. ENTRESTO [Concomitant]
     Active Substance: SACUBITRIL\VALSARTAN
     Indication: Cardiac failure
     Dosage: 97/ 103 DAILY TABLET
     Route: 048
     Dates: start: 2019
  8. SERTRALINE [Concomitant]
     Active Substance: SERTRALINE HYDROCHLORIDE
     Indication: Depression
     Dosage: 50 MG, QD
     Route: 048
     Dates: start: 2019
  9. METFORMIN [Concomitant]
     Active Substance: METFORMIN HYDROCHLORIDE
     Indication: Type 2 diabetes mellitus
     Route: 048

REACTIONS (3)
  - Nausea [Recovered/Resolved]
  - Vomiting [Recovered/Resolved]
  - Diarrhoea [Recovered/Resolved]

NARRATIVE: CASE EVENT DATE: 20230101
